FAERS Safety Report 4692353-4 (Version None)
Quarter: 2005Q2

REPORT INFORMATION
  Report Type: 
  Country: None (occurrence: None)
  Receive Date: 20050616
  Receipt Date: 20050606
  Transmission Date: 20051028
  Serious: Yes (Death)
  Sender: FDA-Public Use
  Company Number: US-GLAXOSMITHKLINE-A0561325A

PATIENT
  Age: 98 Year
  Sex: Female

DRUGS (1)
  1. TUMS E-X TABLETS, ASSORTED BERRIES [Suspect]
     Indication: DRUG USE FOR UNKNOWN INDICATION
     Route: 048

REACTIONS (2)
  - COLON CANCER [None]
  - INTENTIONAL MISUSE [None]
